FAERS Safety Report 21261322 (Version 2)
Quarter: 2023Q1

REPORT INFORMATION
  Report Type: Report from Study
  Country: DE (occurrence: DE)
  Receive Date: 20220827
  Receipt Date: 20230211
  Transmission Date: 20230418
  Serious: Yes (Other)
  Sender: FDA-Public Use
  Company Number: DE-CELLTRION INC.-2022DE013477

PATIENT

DRUGS (13)
  1. TRASTUZUMAB [Suspect]
     Active Substance: TRASTUZUMAB
     Indication: Breast cancer
     Dosage: 672 MILLIGRAM, CYCLIC
     Dates: start: 20220405
  2. TRASTUZUMAB [Suspect]
     Active Substance: TRASTUZUMAB
     Dosage: 549 MILLIGRAM, CYCLIC
     Dates: start: 20220630
  3. TRASTUZUMAB [Suspect]
     Active Substance: TRASTUZUMAB
     Dosage: 546 MILLIGRAM, CYCLIC
     Dates: start: 20220721
  4. PACLITAXEL [Suspect]
     Active Substance: PACLITAXEL
     Indication: Breast cancer
     Dosage: 162 MG, CYCLIC
     Route: 065
     Dates: start: 20220405
  5. PACLITAXEL [Suspect]
     Active Substance: PACLITAXEL
     Dosage: 160 MILLIGRAM, CYCLIC
     Dates: start: 20220630
  6. PACLITAXEL [Suspect]
     Active Substance: PACLITAXEL
     Dosage: 160 MILLIGRAM, CYCLIC
     Dates: start: 20220707
  7. PACLITAXEL [Suspect]
     Active Substance: PACLITAXEL
     Dosage: 162 MILLIGRAM, CYCLIC
     Dates: start: 20220721
  8. CARBOPLATIN [Suspect]
     Active Substance: CARBOPLATIN
     Indication: Breast cancer
     Dosage: 560 MG, CYCLIC
     Dates: start: 20220405
  9. CARBOPLATIN [Suspect]
     Active Substance: CARBOPLATIN
     Dosage: 690 MILLIGRAM, CYCLIC
     Dates: start: 20220721
  10. CARBOPLATIN [Suspect]
     Active Substance: CARBOPLATIN
     Dosage: 692.8 MILLIGRAM, CYCLIC
     Dates: start: 20220730
  11. PERTUZUMAB [Suspect]
     Active Substance: PERTUZUMAB
     Indication: Breast cancer
     Dosage: 840 MG, CYCLIC
     Route: 065
     Dates: start: 20220405
  12. PERTUZUMAB [Suspect]
     Active Substance: PERTUZUMAB
     Dosage: 420 MILLIGRAM, CYCLIC
     Dates: start: 20220721
  13. PEGFILGRASTIM [Concomitant]
     Active Substance: PEGFILGRASTIM
     Dosage: UNK, QD
     Dates: start: 20220729, end: 20220730

REACTIONS (4)
  - Neutropenia [Recovered/Resolved]
  - Polyneuropathy [Not Recovered/Not Resolved]
  - Anaemia [Not Recovered/Not Resolved]
  - Intentional product use issue [Unknown]

NARRATIVE: CASE EVENT DATE: 20220701
